FAERS Safety Report 17186747 (Version 2)
Quarter: 2020Q1

REPORT INFORMATION
  Report Type: Spontaneous
  Country: US (occurrence: US)
  Receive Date: 20191220
  Receipt Date: 20200203
  Transmission Date: 20200409
  Serious: Yes (Hospitalization, Other)
  Sender: FDA-Public Use
  Company Number: US-TEVA-2019-US-1155571

PATIENT

DRUGS (1)
  1. QUETIAPINE TEVA [Suspect]
     Active Substance: QUETIAPINE
     Indication: SLEEP DISORDER
     Route: 065

REACTIONS (8)
  - Delirium [Not Recovered/Not Resolved]
  - Renal disorder [Unknown]
  - Tachycardia [Unknown]
  - Near death experience [Unknown]
  - Myocardial infarction [Unknown]
  - Depression [Unknown]
  - Heart injury [Unknown]
  - Nightmare [Unknown]
